FAERS Safety Report 18477553 (Version 1)
Quarter: 2020Q4

REPORT INFORMATION
  Report Type: Spontaneous
  Country: US (occurrence: US)
  Receive Date: 20201107
  Receipt Date: 20201107
  Transmission Date: 20210114
  Serious: Yes (Other)
  Sender: FDA-Public Use
  Company Number: US-PURDUE-USA-2020-0171567

PATIENT
  Sex: Male

DRUGS (3)
  1. OXYCONTIN [Suspect]
     Active Substance: OXYCODONE HYDROCHLORIDE
     Indication: BACK PAIN
     Dosage: 80 MG, BID
     Route: 048
  2. OXYCONTIN [Suspect]
     Active Substance: OXYCODONE HYDROCHLORIDE
     Dosage: 60 MG, BID
     Route: 048
  3. OXYCONTIN [Suspect]
     Active Substance: OXYCODONE HYDROCHLORIDE
     Dosage: 40 MG, BID
     Route: 048

REACTIONS (10)
  - Skin irritation [Recovered/Resolved]
  - Suicidal ideation [Recovered/Resolved]
  - Crying [Recovered/Resolved]
  - Weight decreased [Recovered/Resolved]
  - Endocrine disorder [Not Recovered/Not Resolved]
  - Depression [Recovered/Resolved]
  - Hyperhidrosis [Recovered/Resolved]
  - Anxiety [Unknown]
  - Constipation [Recovered/Resolved]
  - Decreased appetite [Recovered/Resolved]
